FAERS Safety Report 5650970-9 (Version None)
Quarter: 2008Q1

REPORT INFORMATION
  Report Type: 
  Country: None (occurrence: None)
  Receive Date: 20080131
  Receipt Date: 20071101
  Transmission Date: 20080703
  Serious: No
  Sender: FDA-Public Use
  Company Number: US200711000435

PATIENT
  Sex: Male

DRUGS (3)
  1. BYETTA [Suspect]
     Indication: INSULIN-REQUIRING TYPE 2 DIABETES MELLITUS
     Dosage: 10 UG, 2/D, SUBCUTANEOUS
     Route: 058
     Dates: start: 20070401, end: 20071003
  2. INSULIN HUMALOG MIX (INSULIN LISPRO, ISOPHANE INSULIN) [Concomitant]
  3. ACTOS /USA/ (PIOGLITAZONE HYDROCHLORIDE) [Concomitant]

REACTIONS (4)
  - BLOOD GLUCOSE DECREASED [None]
  - HEADACHE [None]
  - NERVOUSNESS [None]
  - VISION BLURRED [None]
